FAERS Safety Report 16719050 (Version 1)
Quarter: 2019Q3

REPORT INFORMATION
  Report Type: Report from Study
  Country: CA (occurrence: CA)
  Receive Date: 20190820
  Receipt Date: 20190820
  Transmission Date: 20191005
  Serious: Yes (Other)
  Sender: FDA-Public Use
  Company Number: CA-BRISTOL-MYERS SQUIBB COMPANY-BMS-2018-078656

PATIENT
  Age: 59 Year
  Sex: Female

DRUGS (2)
  1. ABATACEPT [Suspect]
     Active Substance: ABATACEPT
     Indication: RHEUMATOID ARTHRITIS
     Dosage: 125 MILLIGRAM, QWK
     Route: 058
     Dates: start: 20180721
  2. SYNTHROID [Concomitant]
     Active Substance: LEVOTHYROXINE SODIUM
     Indication: PRODUCT USED FOR UNKNOWN INDICATION
     Route: 065

REACTIONS (12)
  - Pain [Unknown]
  - Injection site reaction [Unknown]
  - Syncope [Unknown]
  - Condition aggravated [Unknown]
  - Diverticulitis [Unknown]
  - Sinusitis [Recovering/Resolving]
  - Back pain [Unknown]
  - Injection site inflammation [Recovered/Resolved]
  - Urinary tract infection [Recovering/Resolving]
  - Haemangioma of liver [Unknown]
  - Injection site pain [Unknown]
  - Injection site erythema [Recovered/Resolved]

NARRATIVE: CASE EVENT DATE: 20180819
